FAERS Safety Report 6012285-9 (Version None)
Quarter: 2008Q4

REPORT INFORMATION
  Report Type: 
  Country: None (occurrence: None)
  Receive Date: 20081218
  Receipt Date: 20081027
  Transmission Date: 20090506
  Serious: No
  Sender: FDA-Public Use
  Company Number: US-ASTRAZENECA-2008UW24024

PATIENT
  Sex: Female

DRUGS (3)
  1. SYMBICORT [Suspect]
     Dosage: 80/4.5  2 PUFFS BID
     Route: 055
     Dates: start: 20080701
  2. SYMBICORT [Suspect]
     Dosage: 80/4.5  1 PUFF BID
     Route: 055
     Dates: start: 20081001
  3. GAS-X [Concomitant]

REACTIONS (3)
  - ABDOMINAL DISCOMFORT [None]
  - ABDOMINAL PAIN [None]
  - DIARRHOEA [None]
